FAERS Safety Report 12099983 (Version 2)
Quarter: 2016Q1

REPORT INFORMATION
  Report Type: Spontaneous
  Country: JP (occurrence: JP)
  Receive Date: 20160222
  Receipt Date: 20160223
  Transmission Date: 20160526
  Serious: Yes (Hospitalization, Other)
  Sender: FDA-Public Use
  Company Number: JP-PFIZER INC-2016052822

PATIENT
  Age: 98 Year
  Sex: Female

DRUGS (4)
  1. LYRICA [Suspect]
     Active Substance: PREGABALIN
     Indication: ANALGESIC THERAPY
     Dosage: 75 MG, 1X/DAY
     Route: 048
     Dates: start: 20160108, end: 20160124
  2. ELCITONIN [Concomitant]
     Active Substance: ELCATONIN
     Indication: OSTEOPOROSIS
     Dosage: 20 UNITS ONCE WEEKLY
     Route: 030
     Dates: start: 20160109, end: 20160122
  3. CALONAL [Concomitant]
     Active Substance: ACETAMINOPHEN
     Indication: ANALGESIC THERAPY
     Dosage: 400 MG, 3X/DAY
     Route: 048
     Dates: start: 20160109
  4. HANGEKOBOKUTO /07984801/ [Concomitant]
     Indication: GASTRITIS
     Dosage: 4 DF, 3X/DAY
     Route: 048
     Dates: start: 20160114

REACTIONS (6)
  - Feeding disorder [Unknown]
  - Pneumonia [Unknown]
  - White blood cell count increased [Unknown]
  - Cardiac failure [Recovering/Resolving]
  - Pleural effusion [Recovered/Resolved]
  - Respiratory distress [Unknown]

NARRATIVE: CASE EVENT DATE: 20160123
